FAERS Safety Report 5690204-2 (Version None)
Quarter: 2008Q2

REPORT INFORMATION
  Report Type: 
  Country: None (occurrence: None)
  Receive Date: 20080401
  Receipt Date: 20080321
  Transmission Date: 20081010
  Serious: Yes (Hospitalization)
  Sender: FDA-Public Use
  Company Number: FR-BRISTOL-MYERS SQUIBB COMPANY-14047146

PATIENT
  Age: 41 Year
  Sex: Female

DRUGS (2)
  1. PACLITAXEL [Suspect]
     Indication: BREAST CANCER METASTATIC
     Dosage: CYCLE 1: 26-OCT-2007
     Route: 042
     Dates: start: 20071220, end: 20071220
  2. GEMZAR [Suspect]
     Indication: BREAST CANCER METASTATIC
     Dosage: CYCLE 1: 26-OCT-2007
     Route: 042
     Dates: start: 20071227, end: 20071227

REACTIONS (1)
  - HYDRONEPHROSIS [None]
